FAERS Safety Report 15451171 (Version 1)
Quarter: 2018Q4

REPORT INFORMATION
  Report Type: Other
  Country: DE (occurrence: DE)
  Receive Date: 20181001
  Receipt Date: 20181001
  Transmission Date: 20190204
  Serious: Yes (Hospitalization, Other)
  Sender: FDA-Public Use
  Company Number: DE-LUPIN PHARMACEUTICALS INC.-2018-06669

PATIENT
  Age: 83 Year
  Sex: Female
  Weight: 48 kg

DRUGS (11)
  1. TRIAM                              /00031901/ [Suspect]
     Active Substance: TRIAMCINOLONE
     Indication: SCIATICA
     Dosage: UNK (TRIAM UND NAROPIN 20 INJ 1 X O,5 UND 2MG 10 ML)
     Route: 008
     Dates: start: 20180622
  2. ACIDUM FOLICUM [Concomitant]
     Active Substance: FOLIC ACID
     Indication: SCIATICA
     Dosage: 1 DF, QD
     Route: 014
     Dates: start: 20180625
  3. GABAPENTIN. [Suspect]
     Active Substance: GABAPENTIN
     Indication: NEURALGIA
     Dosage: UNK, 500
     Route: 048
     Dates: start: 20180730
  4. NOVALGIN (METAMIZOLE SODIUM) [Suspect]
     Active Substance: METAMIZOLE SODIUM
     Indication: SCIATICA
     Dosage: UNK (NOT KNOWN IN HEIGHT)
     Route: 042
     Dates: start: 20180628
  5. COTRIM FORTE [Suspect]
     Active Substance: SULFAMETHOXAZOLE\TRIMETHOPRIM
     Indication: CYSTITIS NONINFECTIVE
     Dosage: UNK
     Route: 048
     Dates: start: 20180811, end: 20180816
  6. NAROPIN [Suspect]
     Active Substance: ROPIVACAINE HYDROCHLORIDE
     Indication: PAIN IN EXTREMITY
     Dosage: UNK (TRIAM UND NAROPIN 20 INJ 1 X O,5 UND 2MG 10 ML)
     Route: 008
     Dates: start: 20180622
  7. ACIDUM FOLICUM [Concomitant]
     Active Substance: FOLIC ACID
     Dosage: 1 DF, QD
     Route: 030
     Dates: start: 20180625
  8. LEVETIRACETAM. [Suspect]
     Active Substance: LEVETIRACETAM
     Indication: CEREBRAL HAEMORRHAGE
     Dosage: 500 MG, BID
     Route: 042
     Dates: start: 20180702, end: 20180709
  9. LORAZEPAM. [Suspect]
     Active Substance: LORAZEPAM
     Indication: PRODUCT USED FOR UNKNOWN INDICATION
     Dosage: UNK
     Route: 065
  10. LEVETIRACETAM. [Suspect]
     Active Substance: LEVETIRACETAM
     Indication: EPILEPSY
     Dosage: 500 MG, BID
     Route: 048
     Dates: start: 20180816
  11. IOD                                /00082201/ [Suspect]
     Active Substance: IODINE
     Indication: PRODUCT USED FOR UNKNOWN INDICATION
     Dosage: UNK
     Route: 065

REACTIONS (8)
  - Dysphagia [Recovering/Resolving]
  - Platelet count decreased [Unknown]
  - Gamma-glutamyltransferase increased [Unknown]
  - Somnolence [Unknown]
  - Cerebral haemorrhage [Recovered/Resolved with Sequelae]
  - Loss of consciousness [Recovering/Resolving]
  - Epilepsy [Unknown]
  - Sopor [Unknown]

NARRATIVE: CASE EVENT DATE: 20180622
